FAERS Safety Report 4381910-0 (Version None)
Quarter: 2004Q2

REPORT INFORMATION
  Report Type: 
  Country: None (occurrence: None)
  Receive Date: 20040615
  Receipt Date: 20040602
  Transmission Date: 20050107
  Serious: Yes (Disabling)
  Sender: FDA-Public Use
  Company Number: 2004-02494

PATIENT
  Age: 65 Year
  Sex: Male

DRUGS (1)
  1. BETAMETHASONE SODIUM PHOSPHATE [Suspect]
     Indication: ASTHMA
     Dosage: 0.25-0.5 MG DAILY

REACTIONS (1)
  - LOWER MOTOR NEURONE LESION [None]
